FAERS Safety Report 11299951 (Version 1)
Quarter: 2015Q3

REPORT INFORMATION
  Report Type: Spontaneous
  Country: US (occurrence: US)
  Receive Date: 20150722
  Receipt Date: 20150722
  Transmission Date: 20151125
  Serious: No
  Sender: FDA-Public Use
  Company Number: US-ELI_LILLY_AND_COMPANY-US201303007770

PATIENT
  Age: 4 Year
  Sex: Female
  Weight: 15.7 kg

DRUGS (4)
  1. MELATONIN [Concomitant]
     Active Substance: MELATONIN
     Dosage: 3MG/BEDTIME/PRN
  2. LEVOTHYROXINE. [Concomitant]
     Active Substance: LEVOTHYROXINE
     Dosage: 62.5MCG/DAILY
  3. HYDROCORTISONE. [Concomitant]
     Active Substance: HYDROCORTISONE
     Dosage: 2.3MG/TID
  4. HUMATROPE [Suspect]
     Active Substance: SOMATROPIN
     Indication: HYPOPITUITARISM
     Dosage: 0.675 MG, QD
     Route: 058
     Dates: start: 200810

REACTIONS (1)
  - Pneumonia [Recovered/Resolved]

NARRATIVE: CASE EVENT DATE: 20130314
